FAERS Safety Report 5720808-X (Version None)
Quarter: 2008Q2

REPORT INFORMATION
  Report Type: 
  Country: None (occurrence: None)
  Receive Date: 20080425
  Receipt Date: 20080425
  Transmission Date: 20081010
  Serious: Yes (Life-Threatening, Hospitalization)
  Sender: FDA-Public Use
  Company Number: None

PATIENT
  Age: 84 Year
  Sex: Female
  Weight: 83.9154 kg

DRUGS (16)
  1. PRINIVIL [Suspect]
     Indication: HYPERTENSION
     Dosage: SEVEN WEEKS PRIOR
     Dates: start: 20080421
  2. ACETAMINOPHEN AND HYDROCODONE BITARTRATE [Concomitant]
  3. NTG DIS [Concomitant]
  4. PROCRIT [Concomitant]
  5. CLONIDINE [Concomitant]
  6. AMLODIPINE [Concomitant]
  7. FUROSEMIDE [Concomitant]
  8. CARVEDILOL [Concomitant]
  9. PLAVIX [Concomitant]
  10. KLOR-CON [Concomitant]
  11. LIPITOR [Concomitant]
  12. LEXAPRO [Concomitant]
  13. ZOLPIDEM [Concomitant]
  14. DIOVAN [Concomitant]
  15. NOVOLIN R INJ [Concomitant]
  16. LANTUS [Concomitant]

REACTIONS (7)
  - BLOOD POTASSIUM INCREASED [None]
  - BRADYCARDIA [None]
  - HEART RATE DECREASED [None]
  - HYPOTENSION [None]
  - LOSS OF CONSCIOUSNESS [None]
  - PROCEDURAL COMPLICATION [None]
  - RENAL FAILURE ACUTE [None]
